FAERS Safety Report 5403135-X (Version None)
Quarter: 2007Q3

REPORT INFORMATION
  Report Type: 
  Country: None (occurrence: None)
  Receive Date: 20070801
  Receipt Date: 20070731
  Transmission Date: 20080115
  Serious: Yes (Life-Threatening)
  Sender: FDA-Public Use
  Company Number: BE-BOEHRINGER INGELHEIM PHARMACEUTICALS, INC.-2005-BP-21129BP

PATIENT
  Sex: Male
  Weight: 58 kg

DRUGS (11)
  1. MICARDIS [Suspect]
     Indication: CARDIOVASCULAR DISORDER
     Route: 048
     Dates: start: 20020812
  2. MICARDIS [Suspect]
     Indication: CEREBROVASCULAR ACCIDENT PROPHYLAXIS
  3. RAMIPRIL [Suspect]
     Indication: CARDIOVASCULAR DISORDER
     Route: 048
     Dates: start: 20020812
  4. RAMIPRIL [Suspect]
     Indication: CEREBROVASCULAR ACCIDENT PROPHYLAXIS
  5. BRONCHODILATOR [Concomitant]
  6. KINIDINE [Concomitant]
  7. BREXIN [Concomitant]
  8. ZOCOR [Concomitant]
  9. ALLOPURINOL [Concomitant]
  10. COZAAR [Concomitant]
  11. THIOLAIR [Concomitant]

REACTIONS (1)
  - RENAL FAILURE [None]
